FAERS Safety Report 5284910-1 (Version None)
Quarter: 2007Q2

REPORT INFORMATION
  Report Type: 
  Country: None (occurrence: None)
  Receive Date: 20070403
  Receipt Date: 20070323
  Transmission Date: 20071010
  Serious: Yes (Other)
  Sender: FDA-Public Use
  Company Number: 2007AC00543

PATIENT
  Age: 21348 Day
  Sex: Male
  Weight: 86 kg

DRUGS (1)
  1. SYMBICORT [Suspect]
     Indication: BRONCHITIS
     Route: 055
     Dates: start: 20070215, end: 20070223

REACTIONS (2)
  - AGEUSIA [None]
  - DYSGEUSIA [None]
